FAERS Safety Report 17787081 (Version 3)
Quarter: 2020Q2

REPORT INFORMATION
  Report Type: Spontaneous
  Country: GB (occurrence: GB)
  Receive Date: 20200514
  Receipt Date: 20200615
  Transmission Date: 20200714
  Serious: Yes (Hospitalization, Other)
  Sender: FDA-Public Use
  Company Number: GB-MYLANLABS-2020M1048067

PATIENT
  Age: 32 Year
  Sex: Male
  Weight: 84.9 kg

DRUGS (7)
  1. FOLIC ACID. [Concomitant]
     Active Substance: FOLIC ACID
     Indication: FOLATE DEFICIENCY
     Dosage: 5 MILLIGRAM, QD
     Route: 048
     Dates: start: 201903
  2. AMISULPRIDE [Concomitant]
     Active Substance: AMISULPRIDE
     Indication: SCHIZOPHRENIA
     Dosage: 300 MILLIGRAM, BID
     Route: 048
     Dates: start: 20191207, end: 20200511
  3. CLOZARIL [Suspect]
     Active Substance: CLOZAPINE
     Dosage: UNK
     Route: 048
     Dates: start: 20190405, end: 20200506
  4. SERTRALINE [Concomitant]
     Active Substance: SERTRALINE HYDROCHLORIDE
     Indication: ANXIOLYTIC THERAPY
     Dosage: 100 MILLIGRAM, QD
     Route: 048
     Dates: start: 20200127, end: 20200511
  5. CLOZARIL [Suspect]
     Active Substance: CLOZAPINE
     Dosage: 700 MILLIGRAM, QD
     Route: 048
     Dates: start: 20200506
  6. CLOZARIL [Suspect]
     Active Substance: CLOZAPINE
     Indication: SCHIZOPHRENIA
     Dosage: 700 MILLIGRAM, QD
     Route: 048
     Dates: start: 201903, end: 20200505
  7. CLOZARIL [Suspect]
     Active Substance: CLOZAPINE
     Dosage: 700 MILLIGRAM, QD
     Route: 048
     Dates: start: 20200507, end: 20200507

REACTIONS (5)
  - Seizure [Recovered/Resolved]
  - Psychotic disorder [Unknown]
  - Electrocardiogram QT prolonged [Recovered/Resolved]
  - Schizophrenia [Unknown]
  - Loss of consciousness [Recovering/Resolving]

NARRATIVE: CASE EVENT DATE: 2020
